FAERS Safety Report 9547847 (Version 1)
Quarter: 2013Q3

REPORT INFORMATION
  Report Type: Spontaneous
  Country: US (occurrence: None)
  Receive Date: 20130719
  Receipt Date: 20130719
  Transmission Date: 20140515
  Serious: Yes (Hospitalization)
  Sender: FDA-Public Use
  Company Number: 2012BAX008781

PATIENT
  Age: 73 Year
  Sex: Male
  Weight: 68.09 kg

DRUGS (2)
  1. CYCLOPHOSPHAMIDE [Suspect]
     Indication: PLASMA CELL MYELOMA
     Dosage: 800 MG, DAYS 1 + 8, INTRAVENOUS
     Route: 042
     Dates: start: 20111003
  2. VELCADE [Suspect]
     Indication: PLASMA CELL MYELOMA
     Dosage: 2.3 MG, DAYS 1, 4, 8 + 11, INTRAVENOUS
     Route: 042
     Dates: start: 20111003

REACTIONS (1)
  - Cardiac failure congestive [None]
